FAERS Safety Report 20852932 (Version 1)
Quarter: 2022Q2

REPORT INFORMATION
  Report Type: Spontaneous
  Country: CH (occurrence: CH)
  Receive Date: 20220520
  Receipt Date: 20220520
  Transmission Date: 20220720
  Serious: Yes (Death, Other)
  Sender: FDA-Public Use
  Company Number: CH-INCYTE CORPORATION-2022IN004945

PATIENT

DRUGS (1)
  1. TAFASITAMAB [Suspect]
     Active Substance: TAFASITAMAB
     Indication: Product used for unknown indication
     Dosage: 12MG/KG CYCLE 1 ON DAY 1,4,8,15,22; CYCLE 2 ON DAY 1,8,15,22 (200 MG BOTTLE)
     Route: 065
     Dates: start: 20220510

REACTIONS (1)
  - Death [Fatal]
